FAERS Safety Report 9108465 (Version 2)
Quarter: 2013Q2

REPORT INFORMATION
  Report Type: Spontaneous
  Country: US (occurrence: US)
  Receive Date: 20130222
  Receipt Date: 20130412
  Transmission Date: 20140414
  Serious: No
  Sender: FDA-Public Use
  Company Number: US-BAYER-2013-022355

PATIENT
  Age: 44 Year
  Sex: Male

DRUGS (2)
  1. BETASERON [Suspect]
     Indication: MULTIPLE SCLEROSIS
     Dosage: 0.3 MG, QOD
     Route: 058
     Dates: start: 201101
  2. AMPYRA [Suspect]
     Dosage: 10 MG, BID
     Dates: start: 201105

REACTIONS (2)
  - Chills [Unknown]
  - Tremor [Unknown]
